FAERS Safety Report 7211308-9 (Version None)
Quarter: 2011Q1

REPORT INFORMATION
  Report Type: 
  Country: None (occurrence: None)
  Receive Date: 20110105
  Receipt Date: 20101231
  Transmission Date: 20110831
  Serious: Yes (Death)
  Sender: FDA-Public Use
  Company Number: US-PFIZER INC-2011001414

PATIENT
  Age: 60 Year
  Sex: Male

DRUGS (3)
  1. DILTIAZEM [Suspect]
     Route: 048
  2. DOXAZOSIN MESILATE [Suspect]
     Route: 048
  3. HYDROCHLOROTHIAZIDE [Suspect]
     Route: 048

REACTIONS (2)
  - INTENTIONAL DRUG MISUSE [None]
  - COMPLETED SUICIDE [None]
